FAERS Safety Report 5804289-3 (Version None)
Quarter: 2008Q3

REPORT INFORMATION
  Report Type: 
  Country: None (occurrence: None)
  Receive Date: 20080707
  Receipt Date: 20080627
  Transmission Date: 20090109
  Serious: Yes (Hospitalization)
  Sender: FDA-Public Use
  Company Number: 2008PV000043

PATIENT
  Age: 77 Year
  Sex: Female

DRUGS (22)
  1. DEPOCYT [Suspect]
     Indication: ACUTE LYMPHOCYTIC LEUKAEMIA
     Dosage: 50 MG, QOW; INTH
     Route: 037
     Dates: start: 20070520, end: 20070601
  2. METHOTREXATE [Concomitant]
  3. DEXAMETHASONE [Concomitant]
  4. GLAZIDIM [Concomitant]
  5. LORAZEPAM [Concomitant]
  6. CITALOPRAM HYDROBROMIDE [Concomitant]
  7. ZANTAC [Concomitant]
  8. METFORMIN [Concomitant]
  9. CETIRIZINE HYDROCHLORIDE [Concomitant]
  10. ALLOPURINOL [Concomitant]
  11. ACETAMINOPHEN W/ CODEINE [Concomitant]
  12. METRONIDAZOLE HCL [Concomitant]
  13. MEPERIDINE HCL [Concomitant]
  14. FUROSEMIDE [Concomitant]
  15. ONDANSETRON [Concomitant]
  16. NEULASTA [Concomitant]
  17. SPIRONOLACTONE [Concomitant]
  18. TRAZODONE HCL [Concomitant]
  19. DIFLUCAN [Concomitant]
  20. ALIZAPRIDE [Concomitant]
  21. LEUCOVORIN CALCIUM [Concomitant]
  22. CYTOSAR [Concomitant]

REACTIONS (8)
  - ARACHNOIDITIS [None]
  - CENTRAL NERVOUS SYSTEM LEUKAEMIA [None]
  - COLITIS [None]
  - DISEASE PROGRESSION [None]
  - ENCEPHALOPATHY [None]
  - NEUROTOXICITY [None]
  - OVERDOSE [None]
  - PAIN [None]
